FAERS Safety Report 5137731-4 (Version None)
Quarter: 2006Q4

REPORT INFORMATION
  Report Type: 
  Country: None (occurrence: None)
  Receive Date: 20061030
  Receipt Date: 20051227
  Transmission Date: 20070319
  Serious: No
  Sender: FDA-Public Use
  Company Number: US-GLAXOSMITHKLINE-A0587036A

PATIENT
  Sex: Female

DRUGS (10)
  1. ADVAIR HFA [Suspect]
     Route: 055
  2. ALBUTEROL [Concomitant]
  3. ACCOLATE [Concomitant]
  4. CEFZIL [Concomitant]
  5. VALERIAN ROOT [Concomitant]
  6. MULTI-VITAMIN [Concomitant]
  7. VITAMIN D [Concomitant]
  8. GINKGOBILOBA [Concomitant]
  9. FISH OIL [Concomitant]
  10. MELATONIN [Concomitant]

REACTIONS (5)
  - HYPERHIDROSIS [None]
  - PALPITATIONS [None]
  - TREMOR [None]
  - URINE OUTPUT INCREASED [None]
  - WEIGHT INCREASED [None]
